FAERS Safety Report 19282316 (Version 4)
Quarter: 2023Q2

REPORT INFORMATION
  Report Type: Report from Study
  Country: CA (occurrence: CA)
  Receive Date: 20210521
  Receipt Date: 20230517
  Transmission Date: 20230721
  Serious: Yes (Other)
  Sender: FDA-Public Use
  Company Number: CA-JNJFOC-20210536589

PATIENT
  Age: 33 Year
  Sex: Male
  Weight: 105 kg

DRUGS (2)
  1. STELARA [Suspect]
     Active Substance: USTEKINUMAB
     Indication: Crohn^s disease
     Dosage: EXPIRY DATE-30-SEP-2025
     Route: 058
  2. STELARA [Suspect]
     Active Substance: USTEKINUMAB
     Route: 058

REACTIONS (9)
  - Postoperative wound infection [Recovered/Resolved]
  - Lower respiratory tract infection [Recovered/Resolved]
  - Vasectomy [Unknown]
  - Urinary retention [Unknown]
  - Crohn^s disease [Recovering/Resolving]
  - Urinary tract infection [Not Recovered/Not Resolved]
  - Dermatitis [Recovering/Resolving]
  - Renal disorder [Unknown]
  - Liver disorder [Unknown]

NARRATIVE: CASE EVENT DATE: 20210101
